FAERS Safety Report 6037303-3 (Version None)
Quarter: 2009Q1

REPORT INFORMATION
  Report Type: 
  Country: None (occurrence: None)
  Receive Date: 20090114
  Receipt Date: 20090107
  Transmission Date: 20090719
  Serious: Yes (Hospitalization)
  Sender: FDA-Public Use
  Company Number: US-SANOFI-SYNTHELABO-F01200801906

PATIENT
  Sex: Male
  Weight: 87.26 kg

DRUGS (8)
  1. SIMVASTATIN [Concomitant]
     Dosage: UNK
     Route: 065
  2. EZETIMIBE [Concomitant]
     Dosage: UNK
     Route: 065
  3. VALSARTAN [Concomitant]
     Indication: HYPERTENSION
     Dosage: UNK
     Route: 065
  4. AMLODIPINE [Concomitant]
     Indication: HYPERTENSION
     Dosage: UNK
     Route: 065
  5. PLACEBO [Suspect]
  6. ELI LILLY STUDY DRUG [Suspect]
     Indication: INSOMNIA
     Dosage: UNK
     Route: 048
     Dates: start: 20081110
  7. ZOLPIDEM [Suspect]
     Indication: INSOMNIA
     Route: 048
     Dates: start: 20081124
  8. BENAZEPRIL HYDROCHLORIDE [Concomitant]
     Indication: HYPERTENSION
     Dosage: UNK
     Route: 065

REACTIONS (1)
  - ATRIAL FIBRILLATION [None]
